FAERS Safety Report 10330946 (Version 1)
Quarter: 2014Q3

REPORT INFORMATION
  Report Type: Spontaneous
  Country: CN (occurrence: CN)
  Receive Date: 20140722
  Receipt Date: 20140722
  Transmission Date: 20150326
  Serious: Yes (Other)
  Sender: FDA-Public Use
  Company Number: CN-JNJFOC-20140707179

PATIENT
  Age: 4 Year
  Sex: Female
  Weight: 19 kg

DRUGS (5)
  1. PARACETAMOL [Suspect]
     Active Substance: ACETAMINOPHEN
     Indication: PYREXIA
     Route: 048
     Dates: start: 20131218, end: 20131224
  2. QINGKALI (TRADITIONAL CHINESE MEDICINE) [Concomitant]
     Indication: BRONCHITIS
     Route: 048
     Dates: start: 20131221, end: 20131224
  3. ACETYLCYSTEINE. [Concomitant]
     Active Substance: ACETYLCYSTEINE
     Indication: BRONCHITIS
     Route: 048
     Dates: start: 20131221, end: 20131224
  4. PARACETAMOL [Suspect]
     Active Substance: ACETAMINOPHEN
     Route: 048
  5. IBUPROFEN. [Concomitant]
     Active Substance: IBUPROFEN
     Indication: PYREXIA
     Route: 048
     Dates: start: 20131218, end: 20131224

REACTIONS (1)
  - Leukopenia [Recovered/Resolved]

NARRATIVE: CASE EVENT DATE: 20131224
